FAERS Safety Report 9537685 (Version 2)
Quarter: 2013Q4

REPORT INFORMATION
  Report Type: Spontaneous
  Country: US (occurrence: US)
  Receive Date: 20130919
  Receipt Date: 20131015
  Transmission Date: 20140711
  Serious: Yes (Other)
  Sender: FDA-Public Use
  Company Number: CHPA2013US014188

PATIENT
  Age: 89 Year
  Sex: Female

DRUGS (3)
  1. VOLTAREN GEL [Suspect]
     Indication: BLADDER DISCOMFORT
     Dosage: UNK, QD
     Route: 061
  2. VOLTAREN GEL [Suspect]
     Dosage: UNK, QD
     Route: 061
  3. VOLTAREN GEL [Suspect]
     Dosage: UNK, QD
     Route: 061

REACTIONS (4)
  - Bladder irritation [Not Recovered/Not Resolved]
  - Drug administered at inappropriate site [Unknown]
  - Wrong technique in drug usage process [Unknown]
  - Off label use [Unknown]
